FAERS Safety Report 16203778 (Version 1)
Quarter: 2019Q2

REPORT INFORMATION
  Report Type: Spontaneous
  Country: FR (occurrence: FR)
  Receive Date: 20190416
  Receipt Date: 20190416
  Transmission Date: 20190711
  Serious: Yes (Life-Threatening)
  Sender: FDA-Public Use
  Company Number: PHHY2019FR086744

PATIENT
  Age: 70 Year
  Sex: Male

DRUGS (5)
  1. TALTZ [Suspect]
     Active Substance: IXEKIZUMAB
     Indication: PSORIASIS
     Dosage: 160 MG, Q4W
     Route: 058
     Dates: start: 201711, end: 201901
  2. BRODALUMAB [Concomitant]
     Active Substance: BRODALUMAB
     Indication: PSORIASIS
     Dosage: UNK(1ERE INJECTION LE 01/02/2019 ET 2ND INJECTION LE 28/02/2019)
     Route: 058
  3. COSENTYX [Suspect]
     Active Substance: SECUKINUMAB
     Indication: PSORIASIS
     Dosage: 300 MG, Q4W
     Route: 058
     Dates: start: 201608, end: 201711
  4. ENBREL [Suspect]
     Active Substance: ETANERCEPT
     Indication: PSORIASIS
     Dosage: 50 MG, QW
     Route: 058
     Dates: start: 200904, end: 201003
  5. STELARA [Suspect]
     Active Substance: USTEKINUMAB
     Indication: PSORIASIS
     Dosage: 1 DF, Q3MO
     Route: 042
     Dates: start: 201003, end: 201608

REACTIONS (1)
  - Hepatocellular carcinoma [Not Recovered/Not Resolved]

NARRATIVE: CASE EVENT DATE: 20190309
